FAERS Safety Report 7574869-6 (Version None)
Quarter: 2011Q2

REPORT INFORMATION
  Report Type: 
  Country: None (occurrence: None)
  Receive Date: 20110627
  Receipt Date: 20110607
  Transmission Date: 20111010
  Serious: Yes (Hospitalization, Other)
  Sender: FDA-Public Use
  Company Number: US-BAYER-2010-001452

PATIENT
  Age: 29 Year
  Sex: Female
  Weight: 53.968 kg

DRUGS (6)
  1. CEFTIN [Concomitant]
  2. NAPROXEN (ALEVE) [Concomitant]
  3. YAZ [Suspect]
     Indication: ACNE
  4. YAZ [Suspect]
     Indication: ORAL CONTRACEPTION
     Dosage: UNK
     Dates: start: 20071101, end: 20080918
  5. IBUPROFEN [Concomitant]
     Dosage: UNK UNK, PRN
  6. BIAXIN [Concomitant]

REACTIONS (1)
  - PULMONARY EMBOLISM [None]
